FAERS Safety Report 11225804 (Version 1)
Quarter: 2015Q2

REPORT INFORMATION
  Report Type: Spontaneous
  Country: CH (occurrence: CH)
  Receive Date: 20150629
  Receipt Date: 20150629
  Transmission Date: 20150821
  Serious: Yes (Hospitalization, Other)
  Sender: FDA-Public Use
  Company Number: CH-ELI_LILLY_AND_COMPANY-CH201506007498

PATIENT
  Age: 14 Year
  Sex: Female

DRUGS (4)
  1. SOMNIUM /01097801/ [Suspect]
     Active Substance: AVENA SATIVA FLOWERING TOP\ESCHSCHOLZIA CALIFORNICA\HOPS\MAGNESIUM PHOSPHATE, DIBASIC\PASSIFLORA INCARNATA FLOWER\POTASSIUM PHOSPHATE, DIBASIC\SODIUM PHOSPHATE, DIBASIC, ANHYDROUS\VALERIAN
     Indication: PRODUCT USED FOR UNKNOWN INDICATION
     Dosage: 10 DF, SINGLE
     Route: 048
     Dates: start: 20150422, end: 20150422
  2. TRITTICO [Suspect]
     Active Substance: TRAZODONE HYDROCHLORIDE
     Indication: PRODUCT USED FOR UNKNOWN INDICATION
     Dosage: UNK
     Route: 048
  3. TRAMAL [Suspect]
     Active Substance: TRAMADOL
     Indication: PRODUCT USED FOR UNKNOWN INDICATION
     Dosage: UNK
     Route: 048
  4. FLUCTINE [Suspect]
     Active Substance: FLUOXETINE HYDROCHLORIDE
     Indication: PRODUCT USED FOR UNKNOWN INDICATION
     Dosage: 20 MG, UNKNOWN
     Route: 048

REACTIONS (8)
  - Altered state of consciousness [Recovered/Resolved]
  - Self injurious behaviour [Unknown]
  - Toxicity to various agents [Unknown]
  - Gait disturbance [Unknown]
  - Suicidal ideation [Unknown]
  - Speech disorder [Unknown]
  - General physical health deterioration [Recovered/Resolved]
  - Hallucination, visual [Recovered/Resolved]

NARRATIVE: CASE EVENT DATE: 20150422
